FAERS Safety Report 10178210 (Version 2)
Quarter: 2014Q2

REPORT INFORMATION
  Report Type: Spontaneous
  Country: US (occurrence: US)
  Receive Date: 20140519
  Receipt Date: 20140610
  Transmission Date: 20141212
  Serious: No
  Sender: FDA-Public Use
  Company Number: US-009507513-1405USA006006

PATIENT
  Age: 56 Year
  Sex: Male

DRUGS (5)
  1. PEGINTRON [Suspect]
     Indication: HEPATITIS C
     Dosage: UNK
     Dates: start: 20140426
  2. PEGINTRON [Suspect]
     Dosage: UNK
     Dates: start: 2012
  3. RIBAVIRIN [Suspect]
  4. SOVALDI [Concomitant]
     Dosage: 12 CAPSULES A DAY
  5. SOVALDI [Concomitant]
     Dosage: UNK

REACTIONS (10)
  - Tremor [Recovered/Resolved]
  - Pyrexia [Recovered/Resolved]
  - Chills [Recovered/Resolved]
  - Rash [Unknown]
  - Alopecia [Unknown]
  - Decreased appetite [Unknown]
  - Dehydration [Unknown]
  - Injection site rash [Recovered/Resolved]
  - Drug dose omission [Unknown]
  - Product quality issue [Unknown]
